FAERS Safety Report 13346336 (Version 2)
Quarter: 2017Q2

REPORT INFORMATION
  Report Type: Spontaneous
  Country: JP (occurrence: JP)
  Receive Date: 20170317
  Receipt Date: 20170403
  Transmission Date: 20170830
  Serious: Yes (Death, Other)
  Sender: FDA-Public Use
  Company Number: JP-PFIZER INC-2017056978

PATIENT
  Age: 83 Year
  Sex: Female
  Weight: 145 kg

DRUGS (15)
  1. VFEND [Suspect]
     Active Substance: VORICONAZOLE
     Dosage: 120 MG, 2X/DAY
     Route: 042
     Dates: start: 20161215, end: 20161220
  2. VFEND [Suspect]
     Active Substance: VORICONAZOLE
     Dosage: 180 MG, 2X/DAY
     Route: 042
     Dates: start: 20170116, end: 20170116
  3. MAGNESIUM OXIDE. [Concomitant]
     Active Substance: MAGNESIUM OXIDE
     Dosage: 330 MG, UNK
     Route: 048
     Dates: start: 20170127, end: 20170301
  4. VFEND [Suspect]
     Active Substance: VORICONAZOLE
     Dosage: 120 MG, 2X/DAY
     Route: 042
     Dates: start: 20170117, end: 20170202
  5. PREDONINE [Concomitant]
     Active Substance: PREDNISOLONE
     Dosage: 5 MG, UNK
     Route: 048
     Dates: start: 20170111, end: 20170301
  6. DAIPHEN [Concomitant]
     Active Substance: SULFAMETHOXAZOLE\TRIMETHOPRIM
     Dosage: UNK
     Route: 048
     Dates: start: 20170111, end: 20170301
  7. YOKUKANSAN [Concomitant]
     Active Substance: HERBALS
     Dosage: UNK
     Dates: start: 20161216, end: 20170301
  8. VFEND [Suspect]
     Active Substance: VORICONAZOLE
     Indication: FUNGAL INFECTION
     Dosage: 180 MG, 2X/DAY
     Route: 042
     Dates: start: 20161214, end: 20161214
  9. VFEND [Suspect]
     Active Substance: VORICONAZOLE
     Indication: FUNGAL INFECTION
     Dosage: 150 MG, 2X/DAY
     Route: 048
     Dates: start: 20170221, end: 20170221
  10. BAKTAR [Concomitant]
     Active Substance: SULFAMETHOXAZOLE\TRIMETHOPRIM
     Dosage: UNK
     Route: 048
     Dates: start: 20161216, end: 20170104
  11. DISOPYRAMIDE [Concomitant]
     Active Substance: DISOPYRAMIDE
     Dosage: 100 MG, UNK
     Route: 048
     Dates: start: 20170110, end: 20170301
  12. ELIQUIS [Concomitant]
     Active Substance: APIXABAN
     Dosage: 2.5 MG, UNK
     Route: 048
     Dates: start: 20161216, end: 20170301
  13. LANSOPRAZOLE. [Concomitant]
     Active Substance: LANSOPRAZOLE
     Dosage: 30 MG, UNK
     Route: 048
     Dates: start: 20161216, end: 20170301
  14. SENNOSIDE [Concomitant]
     Active Substance: SENNOSIDES
     Dosage: 12 MG, UNK
     Route: 048
     Dates: start: 20161216, end: 20170301
  15. VFEND [Suspect]
     Active Substance: VORICONAZOLE
     Dosage: 100 MG, 2X/DAY
     Route: 048
     Dates: start: 20170222, end: 20170227

REACTIONS (7)
  - Atrial fibrillation [Unknown]
  - Disease recurrence [Unknown]
  - Liver disorder [Recovered/Resolved]
  - Pulmonary mycosis [Fatal]
  - Atypical mycobacterial infection [Unknown]
  - Pneumonia bacterial [Fatal]
  - White blood cell count increased [Unknown]

NARRATIVE: CASE EVENT DATE: 20170109
